FAERS Safety Report 5202498-8 (Version None)
Quarter: 2006Q4

REPORT INFORMATION
  Report Type: 
  Country: None (occurrence: None)
  Receive Date: 20061018
  Receipt Date: 20060912
  Transmission Date: 20070319
  Serious: No
  Sender: FDA-Public Use
  Company Number: 2006111859

PATIENT
  Sex: Male

DRUGS (6)
  1. MACUGEN [Suspect]
     Indication: MACULAR DEGENERATION
     Dates: end: 20060223
  2. MACUGEN [Suspect]
     Indication: NEOVASCULARISATION
     Dates: end: 20060223
  3. FUROSEMIDE [Concomitant]
  4. POTASSIUM CHLORIDE [Concomitant]
  5. PROTONIX [Concomitant]
  6. AGGRENOX [Concomitant]

REACTIONS (1)
  - DRUG ADMINISTRATION ERROR [None]
